FAERS Safety Report 18503516 (Version 4)
Quarter: 2022Q1

REPORT INFORMATION
  Report Type: Spontaneous
  Country: AT (occurrence: AT)
  Receive Date: 20201113
  Receipt Date: 20220117
  Transmission Date: 20220423
  Serious: Yes (Other)
  Sender: FDA-Public Use
  Company Number: NVSC2020AT303640

PATIENT
  Age: 55 Year
  Sex: Male

DRUGS (8)
  1. TACROLIMUS [Suspect]
     Active Substance: TACROLIMUS
     Indication: Transplant
     Dosage: 8 DF (8 NG/ML)
     Route: 065
  2. TACROLIMUS [Suspect]
     Active Substance: TACROLIMUS
     Indication: Immunosuppressant drug therapy
  3. MYCOPHENOLATE MOFETIL [Suspect]
     Active Substance: MYCOPHENOLATE MOFETIL
     Indication: Transplant
     Dosage: UNK
     Route: 065
  4. MYCOPHENOLATE MOFETIL [Suspect]
     Active Substance: MYCOPHENOLATE MOFETIL
     Indication: Immunosuppressant drug therapy
  5. NULOJIX [Suspect]
     Active Substance: BELATACEPT
     Indication: Transplant
     Dosage: 5 MG/KG/6 WEEKS
     Route: 065
  6. NULOJIX [Suspect]
     Active Substance: BELATACEPT
     Indication: Immunosuppressant drug therapy
  7. NULOJIX [Suspect]
     Active Substance: BELATACEPT
     Indication: Nephropathy
  8. ALEMTUZUMAB [Suspect]
     Active Substance: ALEMTUZUMAB
     Indication: Immunosuppressant drug therapy
     Dosage: UNK
     Route: 065

REACTIONS (11)
  - Acute kidney injury [Unknown]
  - Urosepsis [Unknown]
  - Subdural haematoma [Unknown]
  - Herpes virus infection [Unknown]
  - Hypertension [Unknown]
  - Skin papilloma [Unknown]
  - Cytomegalovirus infection [Unknown]
  - Enterococcal infection [Unknown]
  - Transplant rejection [Recovered/Resolved]
  - Drug ineffective [Unknown]
  - Product use in unapproved indication [Unknown]
